FAERS Safety Report 25650644 (Version 2)
Quarter: 2025Q3

REPORT INFORMATION
  Report Type: Spontaneous
  Country: US (occurrence: US)
  Receive Date: 20250806
  Receipt Date: 20250909
  Transmission Date: 20251021
  Serious: No
  Sender: SANOFI AVENTIS
  Company Number: US-SA-2025SA228542

PATIENT
  Age: 17 Year
  Sex: Female

DRUGS (1)
  1. CEREZYME [Suspect]
     Active Substance: IMIGLUCERASE
     Indication: Gaucher^s disease
     Dosage: 45-60 IU/KG, QOW
     Route: 041
     Dates: start: 201403, end: 202503

REACTIONS (4)
  - Pain in extremity [Unknown]
  - Bone density decreased [Unknown]
  - Condition aggravated [Unknown]
  - Short stature [Unknown]

NARRATIVE: CASE EVENT DATE: 20200101
